FAERS Safety Report 17999186 (Version 1)
Quarter: 2020Q3

REPORT INFORMATION
  Report Type: Spontaneous
  Country: US (occurrence: US)
  Receive Date: 20200708
  Receipt Date: 20200708
  Transmission Date: 20201103
  Serious: Yes (Hospitalization)
  Sender: FDA-Public Use
  Company Number: None

PATIENT
  Age: 58 Year
  Sex: Male

DRUGS (10)
  1. FENOFIBRATE. [Concomitant]
     Active Substance: FENOFIBRATE
  2. EZETIMIBE. [Concomitant]
     Active Substance: EZETIMIBE
  3. LISINOPRIL. [Concomitant]
     Active Substance: LISINOPRIL
  4. REPATHA [Suspect]
     Active Substance: EVOLOCUMAB
     Indication: PRODUCT USED FOR UNKNOWN INDICATION
     Route: 058
     Dates: start: 20180217
  5. ASPIRIN. [Concomitant]
     Active Substance: ASPIRIN
  6. NIACIN. [Concomitant]
     Active Substance: NIACIN
  7. CLOPIDOGREL [Concomitant]
     Active Substance: CLOPIDOGREL BISULFATE
  8. METOPROLOL SUCCINATE. [Concomitant]
     Active Substance: METOPROLOL SUCCINATE
  9. JARDIANCE [Concomitant]
     Active Substance: EMPAGLIFLOZIN
  10. GLIPIZIDE. [Concomitant]
     Active Substance: GLIPIZIDE

REACTIONS (1)
  - Stent placement [None]

NARRATIVE: CASE EVENT DATE: 202006
